FAERS Safety Report 8041180-9 (Version None)
Quarter: 2012Q1

REPORT INFORMATION
  Report Type: 
  Country: None (occurrence: None)
  Receive Date: 20120112
  Receipt Date: 20120104
  Transmission Date: 20120608
  Serious: Yes (Hospitalization)
  Sender: FDA-Public Use
  Company Number: US-US-EMD SERONO, INC.-7104575

PATIENT
  Age: 58 Year
  Sex: Male

DRUGS (15)
  1. PROGESTERONE [Concomitant]
     Indication: PRODUCT USED FOR UNKNOWN INDICATION
  2. SOMATROPIN [Suspect]
     Indication: PRODUCT USED FOR UNKNOWN INDICATION
  3. MELATONIN 1 MG [Concomitant]
     Indication: PRODUCT USED FOR UNKNOWN INDICATION
  4. ALANINE [Concomitant]
     Indication: PRODUCT USED FOR UNKNOWN INDICATION
  5. GLUTAMINE [Concomitant]
     Indication: PRODUCT USED FOR UNKNOWN INDICATION
  6. PAMIDRONATE DISODIUM [Concomitant]
     Indication: BLOOD CALCIUM DECREASED
     Route: 042
  7. MAGNESIUM 40 [Concomitant]
     Indication: PRODUCT USED FOR UNKNOWN INDICATION
  8. ARGININE [Concomitant]
     Indication: PRODUCT USED FOR UNKNOWN INDICATION
  9. VITAMIN B COMPLEX PLUS VITAMIN C [Concomitant]
     Indication: PRODUCT USED FOR UNKNOWN INDICATION
  10. PREGNENOLONE 400 MG [Concomitant]
     Indication: PRODUCT USED FOR UNKNOWN INDICATION
  11. VITAMIN AND MINERAL FORMULA F [Concomitant]
     Indication: PRODUCT USED FOR UNKNOWN INDICATION
  12. VITAMIN D [Suspect]
     Indication: VITAMIN SUPPLEMENTATION
  13. MVI AND MINERAL [Concomitant]
     Indication: PRODUCT USED FOR UNKNOWN INDICATION
  14. ADRENEX [Concomitant]
     Indication: PRODUCT USED FOR UNKNOWN INDICATION
     Dosage: 100 MG/2MG
  15. CARNOSINE [Concomitant]
     Indication: PRODUCT USED FOR UNKNOWN INDICATION

REACTIONS (3)
  - OVERDOSE [None]
  - HYPERVITAMINOSIS [None]
  - HYPERCALCAEMIA [None]
